FAERS Safety Report 6454447-2 (Version None)
Quarter: 2009Q4

REPORT INFORMATION
  Report Type: 
  Country: None (occurrence: None)
  Receive Date: 20091124
  Receipt Date: 20091120
  Transmission Date: 20100525
  Serious: Yes (Death, Hospitalization)
  Sender: FDA-Public Use
  Company Number: PHHO2009US11905

PATIENT
  Sex: Female
  Weight: 62.902 kg

DRUGS (15)
  1. RAD 666 RAD+TAB [Suspect]
     Indication: GLIOBLASTOMA MULTIFORME
     Dosage: UNKNOWN
     Dates: start: 20090909, end: 20090921
  2. AVASTIN COMP-AVA+ [Suspect]
     Indication: GLIOBLASTOMA MULTIFORME
     Dosage: UNKNOWN
     Dates: start: 20090630, end: 20090909
  3. TEMOZOLOMIDE COMP-TEMO+ [Suspect]
     Indication: GLIOBLASTOMA MULTIFORME
     Dosage: UNK
     Dates: start: 20090630, end: 20090812
  4. DECADRON [Suspect]
     Dosage: UNK
     Dates: start: 20090522
  5. PEPCID [Concomitant]
  6. BACTRIM [Concomitant]
  7. DIFLUCAN [Concomitant]
  8. PRILOSEC [Concomitant]
  9. SENNA [Concomitant]
  10. COMPAZINE [Concomitant]
  11. EMLA [Concomitant]
  12. NYSTATIN [Concomitant]
  13. RESTORIL [Concomitant]
  14. AMBIEN [Concomitant]
  15. EMLA [Concomitant]

REACTIONS (15)
  - ASTHENIA [None]
  - BLOOD GLUCOSE INCREASED [None]
  - COUGH [None]
  - DEPRESSED LEVEL OF CONSCIOUSNESS [None]
  - DYSPHAGIA [None]
  - GENERAL PHYSICAL HEALTH DETERIORATION [None]
  - GLIOBLASTOMA [None]
  - HYPERGLYCAEMIC HYPEROSMOLAR NONKETOTIC SYNDROME [None]
  - KLEBSIELLA INFECTION [None]
  - LUNG DISORDER [None]
  - MYOPATHY [None]
  - ORAL CANDIDIASIS [None]
  - SOMNOLENCE [None]
  - THROMBOCYTOPENIA [None]
  - URINARY TRACT INFECTION [None]
